FAERS Safety Report 9230869 (Version 4)
Quarter: 2014Q4

REPORT INFORMATION
  Report Type: Report from Study
  Country: JP (occurrence: JP)
  Receive Date: 20130415
  Receipt Date: 20141211
  Transmission Date: 20150529
  Serious: Yes (Other)
  Sender: FDA-Public Use
  Company Number: PHHY2013JP005518

PATIENT
  Age: 28 Year
  Sex: Female
  Weight: 78 kg

DRUGS (42)
  1. CLOZARIL [Suspect]
     Active Substance: CLOZAPINE
     Dosage: 125 MG, QD
     Route: 048
     Dates: start: 20120929, end: 20121002
  2. CLOZARIL [Suspect]
     Active Substance: CLOZAPINE
     Dosage: 150 MG, QD
     Route: 048
     Dates: start: 20121003, end: 20121004
  3. CLOZARIL [Suspect]
     Active Substance: CLOZAPINE
     Dosage: 200 MG, QD
     Route: 048
     Dates: start: 20121008, end: 20121010
  4. LONASEN [Concomitant]
     Active Substance: BLONANSERIN
     Indication: SCHIZOPHRENIA, PARANOID TYPE
     Dosage: 16 MG, UNK
     Route: 048
  5. CLOZARIL [Suspect]
     Active Substance: CLOZAPINE
     Dosage: 175 MG, QD
     Route: 048
     Dates: start: 20121005, end: 20121007
  6. CLOZARIL [Suspect]
     Active Substance: CLOZAPINE
     Dosage: 100 MG, QD
     Route: 048
     Dates: start: 20130111, end: 20130117
  7. IMPROMEN [Concomitant]
     Active Substance: BROMPERIDOL
     Dosage: 9 MG, UNK
     Route: 048
  8. LEVOMEPROMAZINE [Concomitant]
     Active Substance: LEVOMEPROMAZINE
     Dosage: 50 MG, UNK
     Route: 065
     Dates: end: 20121022
  9. AKINETON [Concomitant]
     Active Substance: BIPERIDEN HYDROCHLORIDE
     Dosage: 1 MG, UNK
     Route: 048
     Dates: end: 20121119
  10. NEXIUM 1-2-3 [Concomitant]
     Active Substance: AMOXICILLIN\CLARITHROMYCIN\ESOMEPRAZOLE
     Indication: PROPHYLAXIS
     Dosage: 20 MG, UNK
     Route: 048
     Dates: start: 20121228
  11. LONASEN [Concomitant]
     Active Substance: BLONANSERIN
     Indication: SCHIZOPHRENIA
     Dosage: 24 MG, UNK
     Route: 048
     Dates: start: 20130215
  12. ARIPIPRAZOLE. [Concomitant]
     Active Substance: ARIPIPRAZOLE
     Indication: PRODUCT USED FOR UNKNOWN INDICATION
     Dosage: 3 MG, UNK
     Route: 048
     Dates: start: 20080107, end: 20090603
  13. KOBALNON [Concomitant]
     Active Substance: TEPRENONE
     Indication: PROPHYLAXIS
     Dosage: 150 MG, UNK
     Route: 048
     Dates: start: 20120511, end: 20121105
  14. JZOLOFT [Concomitant]
     Active Substance: SERTRALINE HYDROCHLORIDE
     Indication: SCHIZOPHRENIA
     Dosage: 100 MG, UNK
     Route: 048
     Dates: start: 20121214, end: 20130317
  15. JZOLOFT [Concomitant]
     Active Substance: SERTRALINE HYDROCHLORIDE
     Indication: SCHIZOPHRENIA, PARANOID TYPE
  16. LEVOMEPROMAZINE [Concomitant]
     Active Substance: LEVOMEPROMAZINE
     Dosage: 125 MG, UNK
     Route: 065
  17. RIVOTRIL [Concomitant]
     Active Substance: CLONAZEPAM
     Dosage: 1 MG, UNK
     Route: 048
  18. CLOZARIL [Suspect]
     Active Substance: CLOZAPINE
     Indication: SCHIZOPHRENIA
     Dosage: 12.5 MG, DAILY
     Route: 048
     Dates: start: 20120918, end: 20120918
  19. CLOZARIL [Suspect]
     Active Substance: CLOZAPINE
     Dosage: 100 MG, QD
     Route: 048
     Dates: start: 20120927, end: 20120928
  20. CLOZARIL [Suspect]
     Active Substance: CLOZAPINE
     Dosage: 250 MG, QD
     Route: 048
     Dates: start: 20121011, end: 20121013
  21. HIRNAMIN [Concomitant]
     Active Substance: PHENOTHIAZINE
     Indication: SCHIZOPHRENIA, PARANOID TYPE
     Dosage: 150 MG, UNK
     Route: 048
  22. REBAMIPIDE [Concomitant]
     Active Substance: REBAMIPIDE
     Indication: PROPHYLAXIS
     Dosage: 300 MG, UNK
     Route: 048
     Dates: start: 20120905, end: 20121105
  23. SODIUM VALPROATE [Concomitant]
     Active Substance: VALPROATE SODIUM
     Indication: PRODUCT USED FOR UNKNOWN INDICATION
     Dosage: 800 MG, UNK
     Route: 048
  24. CLOZARIL [Suspect]
     Active Substance: CLOZAPINE
     Dosage: 75 MG, QD
     Route: 048
     Dates: start: 20120925, end: 20120926
  25. CLOZARIL [Suspect]
     Active Substance: CLOZAPINE
     Dosage: 300 MG, QD
     Route: 048
     Dates: start: 20121014, end: 20121112
  26. HIRNAMIN [Concomitant]
     Active Substance: PHENOTHIAZINE
     Dosage: 100 MG, UNK
     Route: 048
     Dates: end: 20130324
  27. IMPROMEN [Concomitant]
     Active Substance: BROMPERIDOL
     Indication: SCHIZOPHRENIA
     Dosage: 4 MG, UNK
     Route: 048
     Dates: start: 20130222
  28. CLOZARIL [Suspect]
     Active Substance: CLOZAPINE
     Indication: SCHIZOPHRENIA, PARANOID TYPE
     Dosage: 25 MG, QD
     Route: 048
     Dates: start: 20120919, end: 20120921
  29. CLOZARIL [Suspect]
     Active Substance: CLOZAPINE
     Dosage: 200 MG, QD
     Route: 048
     Dates: start: 20121113, end: 20130110
  30. PARIET [Concomitant]
     Active Substance: RABEPRAZOLE SODIUM
     Indication: PROPHYLAXIS
     Dosage: 20 MG, UNK
     Route: 048
     Dates: start: 20100402, end: 20121227
  31. LONASEN [Concomitant]
     Active Substance: BLONANSERIN
     Dosage: 8 MG, UNK
     Route: 048
     Dates: end: 20130317
  32. IMPROMEN [Concomitant]
     Active Substance: BROMPERIDOL
     Indication: SCHIZOPHRENIA, PARANOID TYPE
     Dosage: 7 MG, UNK
     Route: 048
  33. LEVOMEPROMAZINE [Concomitant]
     Active Substance: LEVOMEPROMAZINE
     Indication: PRODUCT USED FOR UNKNOWN INDICATION
     Dosage: 150 MG, UNK
     Route: 065
     Dates: start: 20120720
  34. SODIUM VALPROATE [Concomitant]
     Active Substance: VALPROATE SODIUM
     Dosage: UNK UKN, UNK
     Route: 048
  35. CLOZARIL [Suspect]
     Active Substance: CLOZAPINE
     Dosage: 50 MG, QD
     Route: 048
     Dates: start: 20120922, end: 20120924
  36. INDERAL [Concomitant]
     Active Substance: PROPRANOLOL HYDROCHLORIDE
     Indication: PRODUCT USED FOR UNKNOWN INDICATION
     Dosage: 20 MG, UNK
     Route: 048
     Dates: start: 20121214, end: 20130221
  37. HIRNAMIN [Concomitant]
     Active Substance: PHENOTHIAZINE
     Indication: SCHIZOPHRENIA
     Dosage: 50 MG, UNK
     Route: 048
     Dates: start: 20130125
  38. LEVOMEPROMAZINE [Concomitant]
     Active Substance: LEVOMEPROMAZINE
     Dosage: 100 MG, UNK
     Route: 065
  39. RIVOTRIL [Concomitant]
     Active Substance: CLONAZEPAM
     Indication: SCHIZOPHRENIA, PARANOID TYPE
     Dosage: 6 MG, UNK
     Route: 048
     Dates: start: 20121015
  40. RIVOTRIL [Concomitant]
     Active Substance: CLONAZEPAM
     Dosage: 5 MG, UNK
     Route: 048
     Dates: start: 20121016
  41. RIVOTRIL [Concomitant]
     Active Substance: CLONAZEPAM
     Dosage: 2 MG, UNK
     Route: 048
     Dates: end: 20121105
  42. AKINETON [Concomitant]
     Active Substance: BIPERIDEN HYDROCHLORIDE
     Indication: PROPHYLAXIS
     Dosage: 2 MG, UNK
     Route: 048
     Dates: start: 20100107

REACTIONS (8)
  - Seizure [Recovering/Resolving]
  - Tremor [Recovered/Resolved]
  - Loss of consciousness [Unknown]
  - Salivary hypersecretion [Recovered/Resolved]
  - White blood cell count increased [Unknown]
  - Generalised tonic-clonic seizure [Unknown]
  - Heart rate increased [Unknown]
  - Eosinophil count increased [Unknown]

NARRATIVE: CASE EVENT DATE: 20121016
